FAERS Safety Report 17909263 (Version 1)
Quarter: 2020Q2

REPORT INFORMATION
  Report Type: Spontaneous
  Country: IN (occurrence: IN)
  Receive Date: 20200617
  Receipt Date: 20200617
  Transmission Date: 20200714
  Serious: Yes (Hospitalization)
  Sender: FDA-Public Use
  Company Number: NVSC2020IN167326

PATIENT
  Age: 46 Year
  Sex: Male

DRUGS (1)
  1. SIMULECT [Suspect]
     Active Substance: BASILIXIMAB
     Indication: RENAL TRANSPLANT
     Dosage: 20 MG
     Route: 065
     Dates: start: 20200603

REACTIONS (2)
  - Kidney transplant rejection [Unknown]
  - Pyrexia [Unknown]

NARRATIVE: CASE EVENT DATE: 20200605
